FAERS Safety Report 13524807 (Version 1)
Quarter: 2017Q2

REPORT INFORMATION
  Report Type: Spontaneous
  Country: US (occurrence: US)
  Receive Date: 20170508
  Receipt Date: 20170508
  Transmission Date: 20170830
  Serious: No
  Sender: FDA-Public Use
  Company Number: US-ROCHE-1125776

PATIENT
  Sex: Male

DRUGS (6)
  1. OXALIPLATIN. [Concomitant]
     Active Substance: OXALIPLATIN
  2. AVASTIN [Suspect]
     Active Substance: BEVACIZUMAB
     Indication: COLON CANCER
     Route: 065
     Dates: start: 20051011
  3. 5-FU [Concomitant]
     Active Substance: FLUOROURACIL
  4. XELODA [Suspect]
     Active Substance: CAPECITABINE
     Indication: PRODUCT USED FOR UNKNOWN INDICATION
     Route: 065
  5. IRINOTECAN [Concomitant]
     Active Substance: IRINOTECAN
  6. LEUCOVORIN. [Concomitant]
     Active Substance: LEUCOVORIN

REACTIONS (2)
  - Disease progression [Unknown]
  - Toxicity to various agents [Unknown]
